FAERS Safety Report 19453595 (Version 4)
Quarter: 2021Q3

REPORT INFORMATION
  Report Type: Spontaneous
  Country: US (occurrence: US)
  Receive Date: 20210623
  Receipt Date: 20210906
  Transmission Date: 20211014
  Serious: Yes (Other)
  Sender: FDA-Public Use
  Company Number: US-PFIZER INC-2021524789

PATIENT
  Age: 33 Year
  Sex: Female

DRUGS (2)
  1. XELJANZ [Suspect]
     Active Substance: TOFACITINIB CITRATE
     Dosage: 10 MG, 1X/DAY
     Route: 048
     Dates: end: 20210812
  2. XELJANZ [Suspect]
     Active Substance: TOFACITINIB CITRATE
     Indication: COLITIS ULCERATIVE
     Dosage: 10 MG, 2X/DAY
     Route: 048
     Dates: start: 20210316

REACTIONS (13)
  - Product dose omission in error [Unknown]
  - Intentional product use issue [Unknown]
  - Abdominal pain upper [Unknown]
  - Nausea [Unknown]
  - Mouth ulceration [Unknown]
  - Fatigue [Unknown]
  - Vomiting [Unknown]
  - Abdominal discomfort [Unknown]
  - Chest pain [Recovered/Resolved]
  - Urine odour abnormal [Recovered/Resolved]
  - Gastroenteritis Escherichia coli [Unknown]
  - Feeling hot [Recovered/Resolved]
  - Burning sensation [Recovered/Resolved]
